FAERS Safety Report 23363968 (Version 2)
Quarter: 2024Q1

REPORT INFORMATION
  Report Type: Report from Study
  Country: CA (occurrence: CA)
  Receive Date: 20240104
  Receipt Date: 20240124
  Transmission Date: 20240410
  Serious: Yes (Death, Hospitalization, Other)
  Sender: FDA-Public Use
  Company Number: CA-ABBVIE-5568961

PATIENT
  Age: 68 Year
  Sex: Male

DRUGS (4)
  1. VENCLEXTA [Suspect]
     Active Substance: VENETOCLAX
     Indication: Acute myeloid leukaemia
     Dosage: FREQUENCY TEXT: DAY 1
     Route: 048
     Dates: start: 20231207, end: 20231207
  2. VENCLEXTA [Suspect]
     Active Substance: VENETOCLAX
     Indication: Acute myeloid leukaemia
     Dosage: FREQUENCY TEXT: DAY 3-16
     Route: 048
     Dates: start: 20231209, end: 20231222
  3. VENCLEXTA [Suspect]
     Active Substance: VENETOCLAX
     Indication: Acute myeloid leukaemia
     Dosage: FREQUENCY TEXT: DAY 2
     Route: 048
     Dates: start: 20231208, end: 20231208
  4. AZACITIDINE [Concomitant]
     Active Substance: AZACITIDINE
     Indication: Acute myeloid leukaemia recurrent
     Dates: start: 20231106, end: 20231209

REACTIONS (8)
  - Gait disturbance [Fatal]
  - Gastrointestinal infection [Unknown]
  - Intestinal haemorrhage [Fatal]
  - Chills [Fatal]
  - Pneumonia [Unknown]
  - Acute myeloid leukaemia [Fatal]
  - Sepsis [Fatal]
  - Drug ineffective [Unknown]

NARRATIVE: CASE EVENT DATE: 20231201
